FAERS Safety Report 21376588 (Version 4)
Quarter: 2023Q2

REPORT INFORMATION
  Report Type: Spontaneous
  Country: JP (occurrence: JP)
  Receive Date: 20220926
  Receipt Date: 20230417
  Transmission Date: 20230721
  Serious: Yes (Death)
  Sender: FDA-Public Use
  Company Number: JP-NEUROCRINE BIOSCIENCES INC.-2022NBI06780

PATIENT

DRUGS (1)
  1. VALBENAZINE [Suspect]
     Active Substance: VALBENAZINE
     Indication: Tardive dyskinesia
     Dosage: UNK
     Route: 048
     Dates: end: 20220912

REACTIONS (2)
  - General physical health deterioration [Fatal]
  - Pneumonia [Fatal]
